FAERS Safety Report 25018802 (Version 1)
Quarter: 2025Q1

REPORT INFORMATION
  Report Type: Spontaneous
  Country: US (occurrence: US)
  Receive Date: 20250227
  Receipt Date: 20250227
  Transmission Date: 20250409
  Serious: No
  Sender: AVADEL CNS PHARMACEUTICALS, LLC
  Company Number: US-AVADEL CNS PHARMACEUTICALS, LLC-2025AVA00133

PATIENT
  Sex: Female
  Weight: 53.515 kg

DRUGS (12)
  1. LUMRYZ [Suspect]
     Active Substance: SODIUM OXYBATE
     Indication: Narcolepsy
     Dosage: 4.5 G, ONCE NIGHTLY AT BEDTIME
     Dates: start: 2024
  2. WAKIX [Concomitant]
     Active Substance: PITOLISANT HYDROCHLORIDE
  3. XDEMVY [Concomitant]
     Active Substance: LOTILANER
  4. RESTASIS [Concomitant]
     Active Substance: CYCLOSPORINE
  5. MUPIROCIN [Concomitant]
     Active Substance: MUPIROCIN
  6. ZOLMITRIPTAN [Concomitant]
     Active Substance: ZOLMITRIPTAN
  7. TRILEPTAL [Concomitant]
     Active Substance: OXCARBAZEPINE
  8. METHOTREXATE [Concomitant]
     Active Substance: METHOTREXATE
  9. JORNAY PM EXTENDED-RELEASE [Concomitant]
     Active Substance: METHYLPHENIDATE HYDROCHLORIDE
  10. GABAPENTIN [Concomitant]
     Active Substance: GABAPENTIN
  11. DAYSEE [Concomitant]
     Active Substance: ETHINYL ESTRADIOL\LEVONORGESTREL
  12. CELEBREX [Concomitant]
     Active Substance: CELECOXIB

REACTIONS (3)
  - Fatigue [Not Recovered/Not Resolved]
  - Somnolence [Not Recovered/Not Resolved]
  - Drug ineffective [Not Recovered/Not Resolved]

NARRATIVE: CASE EVENT DATE: 20240101
